FAERS Safety Report 20422101 (Version 1)
Quarter: 2022Q1

REPORT INFORMATION
  Report Type: Spontaneous
  Country: US (occurrence: US)
  Receive Date: 20220203
  Receipt Date: 20220203
  Transmission Date: 20220423
  Serious: No
  Sender: FDA-Public Use
  Company Number: US-TEVA-2022-US-2002848

PATIENT
  Age: 61 Year
  Sex: Female
  Weight: 70.31 kg

DRUGS (4)
  1. PROVIGIL [Suspect]
     Active Substance: MODAFINIL
     Indication: Multiple sclerosis
     Route: 065
  2. AMPYRA [Concomitant]
     Active Substance: DALFAMPRIDINE
  3. VITAMIN D3 [Concomitant]
     Active Substance: CHOLECALCIFEROL
  4. VITAMIN B12 [Concomitant]
     Active Substance: CYANOCOBALAMIN

REACTIONS (3)
  - Product use in unapproved indication [Unknown]
  - Gluten sensitivity [Unknown]
  - Protein deficiency [Unknown]
